FAERS Safety Report 10759321 (Version 1)
Quarter: 2015Q1

REPORT INFORMATION
  Report Type: Spontaneous
  Country: US (occurrence: None)
  Receive Date: 20150126
  Receipt Date: 20150126
  Transmission Date: 20150721
  Serious: Yes (Other)
  Sender: FDA-Public Use
  Company Number: MC201300344

PATIENT
  Age: 65 Year
  Sex: Male

DRUGS (2)
  1. BRILINTA [Concomitant]
     Active Substance: TICAGRELOR
  2. ANGIOMAX [Suspect]
     Active Substance: BIVALIRUDIN
     Route: 040

REACTIONS (2)
  - Coagulation time abnormal [None]
  - Thrombosis in device [None]

NARRATIVE: CASE EVENT DATE: 20130612
